FAERS Safety Report 9144830 (Version 1)
Quarter: 2013Q1

REPORT INFORMATION
  Report Type: Spontaneous
  Country: CO (occurrence: CO)
  Receive Date: 20130307
  Receipt Date: 20130307
  Transmission Date: 20140127
  Serious: Yes (Other)
  Sender: FDA-Public Use
  Company Number: CO-AMGEN-COLSP2013015285

PATIENT
  Age: 68 Year
  Sex: Female

DRUGS (5)
  1. ENBREL [Suspect]
     Indication: PSORIATIC ARTHROPATHY
     Dosage: 50 MG, WEEKLY
     Route: 058
     Dates: start: 2003
  2. METHOTREXATE [Concomitant]
     Indication: ARTHRITIS
     Dosage: 3 TABLETS OF 2MG ON SATURDAY AND 3 TABLETS OF 2MG ON SUNDAY, WEEKLY
     Route: 048
     Dates: start: 2003
  3. FOLIC ACID [Concomitant]
     Indication: LIVER DISORDER
     Dosage: UNK
     Route: 048
     Dates: start: 2011
  4. OMEPRAZOL                          /00661201/ [Concomitant]
     Indication: PROPHYLAXIS
     Dosage: 20 MG, 2X/DAY
     Route: 065
  5. ACETAMINOPHEN [Concomitant]
     Indication: PAIN
     Dosage: UNK, AS NECESSARY
     Route: 065

REACTIONS (4)
  - Bone decalcification [Not Recovered/Not Resolved]
  - Blister [Not Recovered/Not Resolved]
  - Gait disturbance [Not Recovered/Not Resolved]
  - Hyperkeratosis [Not Recovered/Not Resolved]
